FAERS Safety Report 5276760-7 (Version None)
Quarter: 2007Q1

REPORT INFORMATION
  Report Type: 
  Country: None (occurrence: None)
  Receive Date: 20070327
  Receipt Date: 20070312
  Transmission Date: 20070707
  Serious: Yes (Hospitalization)
  Sender: FDA-Public Use
  Company Number: GB-BAYER-200610467BNE

PATIENT
  Age: 59 Year
  Sex: Male
  Weight: 71 kg

DRUGS (6)
  1. SORAFENIB [Suspect]
     Route: 048
     Dates: start: 20060404
  2. SIMVASTATIN [Concomitant]
     Route: 048
  3. OXYCONTIN [Concomitant]
     Route: 048
  4. ACETAMINOPHEN [Concomitant]
     Route: 048
  5. VOLTAREN [Concomitant]
     Route: 048
  6. OXYNORM [Concomitant]
     Route: 048

REACTIONS (7)
  - C-REACTIVE PROTEIN INCREASED [None]
  - COUGH [None]
  - DYSPNOEA [None]
  - PLEURITIC PAIN [None]
  - PYREXIA [None]
  - RASH GENERALISED [None]
  - VOMITING [None]
